FAERS Safety Report 5283750-7 (Version None)
Quarter: 2007Q1

REPORT INFORMATION
  Report Type: 
  Country: None (occurrence: None)
  Receive Date: 20061226
  Receipt Date: 20060815
  Transmission Date: 20070707
  Serious: Yes (Life-Threatening)
  Sender: FDA-Public Use
  Company Number: WAES 0610USA03306

PATIENT
  Sex: Female

DRUGS (3)
  1. ZETIA [Suspect]
     Indication: DRUG USE FOR UNKNOWN INDICATION
     Dosage: 80 MG/HS/PO
     Route: 048
     Dates: start: 20060301
  2. MEVACOR [Suspect]
     Indication: DRUG USE FOR UNKNOWN INDICATION
     Dosage: 10MG/HS/PO
     Route: 048
  3. WARFARIN SODIUM [Concomitant]

REACTIONS (3)
  - DRUG DISPENSING ERROR [None]
  - LABORATORY TEST ABNORMAL [None]
  - OVERDOSE [None]
